FAERS Safety Report 20931602 (Version 2)
Quarter: 2022Q3

REPORT INFORMATION
  Report Type: Spontaneous
  Country: US (occurrence: None)
  Receive Date: 20220608
  Receipt Date: 20220702
  Transmission Date: 20221027
  Serious: No
  Sender: FDA-Public Use
  Company Number: 2022A184840

PATIENT

DRUGS (1)
  1. FASENRA [Suspect]
     Active Substance: BENRALIZUMAB
     Route: 058

REACTIONS (5)
  - Ageusia [Recovered/Resolved]
  - Rhinorrhoea [Recovered/Resolved]
  - Suspected COVID-19 [Unknown]
  - Nasal congestion [Unknown]
  - Anosmia [Unknown]

NARRATIVE: CASE EVENT DATE: 20220512
